FAERS Safety Report 17507008 (Version 1)
Quarter: 2020Q1

REPORT INFORMATION
  Report Type: Spontaneous
  Country: US (occurrence: US)
  Receive Date: 20200306
  Receipt Date: 20200306
  Transmission Date: 20200409
  Serious: Yes (Hospitalization)
  Sender: FDA-Public Use
  Company Number: US-EMCURE PHARMACEUTICALS LTD-2020-EPL-000209

PATIENT
  Age: 8 Year
  Sex: Female
  Weight: 29.9 kg

DRUGS (12)
  1. VANCOMYCIN HYDROCHLORIDE. [Suspect]
     Active Substance: VANCOMYCIN HYDROCHLORIDE
     Indication: PNEUMONIA
     Dosage: 18.5 MG/KG, ONE INTRAVENOUS (IV) DOSE
     Route: 042
  2. VANCOMYCIN HYDROCHLORIDE. [Suspect]
     Active Substance: VANCOMYCIN HYDROCHLORIDE
     Indication: ACUTE RESPIRATORY DISTRESS SYNDROME
     Dosage: 18.5 MG/KG PER DOSE EVERY 8 HRS, TARGET TROUGH CONCENTRATION OF 15-20 MG/L
     Route: 042
  3. NORMAL SALINE [Concomitant]
     Active Substance: SODIUM CHLORIDE
     Dosage: 20 MILLIGRAM/KILOGRAM
     Route: 040
  4. PIPERACILLIN/TAZOBACTAM [Suspect]
     Active Substance: PIPERACILLIN SODIUM\TAZOBACTAM SODIUM
     Indication: PNEUMONIA
     Dosage: 84 MILLIGRAM PER KILOGRAM, ONE IV DOSE
     Route: 042
  5. ALBUTEROL. [Concomitant]
     Active Substance: ALBUTEROL
     Indication: ACUTE RESPIRATORY DISTRESS SYNDROME
     Dosage: UNK, PRN
     Route: 045
  6. VANCOMYCIN HYDROCHLORIDE. [Suspect]
     Active Substance: VANCOMYCIN HYDROCHLORIDE
     Dosage: 18.5 MILLIGRAM PER KILOGRAM, 1 DOSE PER 6HRS, HER TROUGH CONCENTRATION WAS REPORTED TO BE {5 MG/L
     Route: 042
  7. SODIUM CHLORIDE. [Concomitant]
     Active Substance: SODIUM CHLORIDE
     Dosage: NEBULIZED EVERY 4 HOURS
  8. CEFTRIAXONE. [Concomitant]
     Active Substance: CEFTRIAXONE
     Indication: PNEUMONIA
  9. PIPERACILLIN/TAZOBACTAM [Suspect]
     Active Substance: PIPERACILLIN SODIUM\TAZOBACTAM SODIUM
     Indication: ACUTE RESPIRATORY DISTRESS SYNDROME
     Dosage: 100 MILLIGRAM PER KILOGRAM, 1 DOSE PER 8HRS
     Route: 042
  10. ALBUTEROL. [Concomitant]
     Active Substance: ALBUTEROL
     Indication: PNEUMONIA
  11. PIPERACILLIN/TAZOBACTAM [Suspect]
     Active Substance: PIPERACILLIN SODIUM\TAZOBACTAM SODIUM
     Dosage: 100 MILLIGRAM PER KILOGRAM, 1 DOSE PER 6HRS
     Route: 042
  12. CEFTRIAXONE. [Concomitant]
     Active Substance: CEFTRIAXONE
     Indication: ACUTE RESPIRATORY DISTRESS SYNDROME
     Dosage: 67 MILLIGRAM PER KILOGRAM, IV EVERY 24 HOURS
     Route: 042

REACTIONS (1)
  - Acute kidney injury [Recovered/Resolved]
